FAERS Safety Report 25914397 (Version 1)
Quarter: 2025Q4

REPORT INFORMATION
  Report Type: Spontaneous
  Country: US (occurrence: US)
  Receive Date: 20251013
  Receipt Date: 20251013
  Transmission Date: 20260118
  Serious: No
  Sender: PFIZER
  Company Number: US-PFIZER INC-202500092915

PATIENT
  Age: 76 Year
  Sex: Female

DRUGS (1)
  1. BOSULIF [Suspect]
     Active Substance: BOSUTINIB MONOHYDRATE
     Indication: Lung neoplasm malignant
     Dosage: TAKE 1 TABLET ONCE DAILY WITH FOOD
     Route: 048

REACTIONS (2)
  - White blood cell count increased [Unknown]
  - Off label use [Unknown]
